FAERS Safety Report 17165010 (Version 2)
Quarter: 2020Q1

REPORT INFORMATION
  Report Type: Spontaneous
  Country: US (occurrence: US)
  Receive Date: 20191213
  Receipt Date: 20200117
  Transmission Date: 20200409
  Serious: No
  Sender: FDA-Public Use
  Company Number: US-PHARMING-PHAUS2019000600

PATIENT

DRUGS (1)
  1. RUCONEST [Suspect]
     Active Substance: HUMAN C1-ESTERASE INHIBITOR
     Indication: HEREDITARY ANGIOEDEMA
     Dosage: 3100 IU INTERNATIONAL UNIT(S), AS NEEDED
     Route: 042
     Dates: start: 20190907

REACTIONS (8)
  - Pain [Unknown]
  - Dry mouth [Unknown]
  - Fatigue [Unknown]
  - Urticaria [Unknown]
  - Hereditary angioedema [Unknown]
  - Pruritus [Unknown]
  - Headache [Unknown]
  - Muscle spasms [Unknown]

NARRATIVE: CASE EVENT DATE: 20191006
